FAERS Safety Report 18916899 (Version 1)
Quarter: 2021Q1

REPORT INFORMATION
  Report Type: Spontaneous
  Country: KR (occurrence: KR)
  Receive Date: 20210219
  Receipt Date: 20210219
  Transmission Date: 20210420
  Serious: Yes (Death, Hospitalization)
  Sender: FDA-Public Use
  Company Number: KR-STRIDES ARCOLAB LIMITED-2021SP002195

PATIENT
  Age: 49 Year
  Sex: Female

DRUGS (2)
  1. TAMOXIFEN [Suspect]
     Active Substance: TAMOXIFEN
     Indication: ENCAPSULATING PERITONEAL SCLEROSIS
     Dosage: 10 MILLIGRAM
     Route: 048
  2. PREDNISOLONE. [Suspect]
     Active Substance: PREDNISOLONE
     Indication: ENCAPSULATING PERITONEAL SCLEROSIS
     Dosage: 20 MILLIGRAM
     Route: 048

REACTIONS (4)
  - Bacterial sepsis [Fatal]
  - Hepatic artery thrombosis [Unknown]
  - Portal vein thrombosis [Unknown]
  - Deep vein thrombosis [Unknown]
